FAERS Safety Report 5580311-7 (Version None)
Quarter: 2008Q1

REPORT INFORMATION
  Report Type: 
  Country: None (occurrence: None)
  Receive Date: 20080103
  Receipt Date: 20071219
  Transmission Date: 20080703
  Serious: Yes (Hospitalization, Other)
  Sender: FDA-Public Use
  Company Number: US-AMGEN-QUU254291

PATIENT
  Sex: Female
  Weight: 53.1 kg

DRUGS (12)
  1. ENBREL [Suspect]
     Indication: RHEUMATOID ARTHRITIS
     Route: 058
     Dates: start: 20050817, end: 20071204
  2. ENBREL [Suspect]
     Indication: OSTEOARTHRITIS
  3. PREDNISONE TAB [Concomitant]
     Dates: start: 20071018
  4. VYTORIN [Concomitant]
     Dates: start: 20070730
  5. VITAMIN D [Concomitant]
     Dates: start: 20070730
  6. EVISTA [Concomitant]
     Dates: start: 20070730
  7. DOXEPIN HYDROCHLORIDE [Concomitant]
     Dates: start: 20070730
  8. ATENOLOL [Concomitant]
     Dates: start: 20070730
  9. POTASSIUM CHLORIDE [Concomitant]
     Dates: start: 20060306
  10. PREVACID [Concomitant]
     Dates: start: 20051109
  11. CALTRATE PLUS [Concomitant]
     Dates: start: 20040414
  12. NORCO [Concomitant]
     Dates: start: 20071018

REACTIONS (18)
  - ANAEMIA [None]
  - ASTHENIA [None]
  - BACK PAIN [None]
  - CHEST PAIN [None]
  - DYSPNOEA [None]
  - FATIGUE [None]
  - GASTRITIS [None]
  - HEADACHE [None]
  - HIATUS HERNIA [None]
  - IMMUNOSUPPRESSION [None]
  - JOINT STIFFNESS [None]
  - MALNUTRITION [None]
  - MYOFASCIAL PAIN SYNDROME [None]
  - OEDEMA PERIPHERAL [None]
  - PAIN IN EXTREMITY [None]
  - PALLOR [None]
  - PRESYNCOPE [None]
  - TRAUMATIC BRAIN INJURY [None]
